FAERS Safety Report 19520053 (Version 1)
Quarter: 2021Q3

REPORT INFORMATION
  Report Type: Spontaneous
  Country: US (occurrence: US)
  Receive Date: 20210712
  Receipt Date: 20210712
  Transmission Date: 20211014
  Serious: Yes (Hospitalization)
  Sender: FDA-Public Use
  Company Number: US-FRESENIUS KABI-FK202107024

PATIENT
  Age: 57 Year
  Sex: Male
  Weight: 96.1 kg

DRUGS (37)
  1. PARACETAMOL [Concomitant]
     Active Substance: ACETAMINOPHEN
     Indication: CYTOKINE RELEASE SYNDROME
     Dosage: ACETAMINOPHEN (PARACETAMOL) (UNKNOWN)
     Route: 048
     Dates: start: 20210302, end: 20210302
  2. ENOXAPARIN [Concomitant]
     Active Substance: ENOXAPARIN
     Indication: PRODUCT USED FOR UNKNOWN INDICATION
     Dosage: ENOXAPARIN (INJECTION)
     Route: 058
     Dates: start: 20210226, end: 20210305
  3. SODIUM CHLORIDE. [Concomitant]
     Active Substance: SODIUM CHLORIDE
     Indication: CHEMOTHERAPY SIDE EFFECT PROPHYLAXIS
     Dosage: NACL (SODIUM CHLORIDE)(0.9 PERCENT, UNKNOWN)
     Route: 042
     Dates: start: 20210309
  4. SODIUM CHLORIDE. [Concomitant]
     Active Substance: SODIUM CHLORIDE
     Indication: VASCULAR DEVICE OCCLUSION
     Dosage: NACL (SODIUM CHLORIDE)(0.9 PERCENT, UNKNOWN)
     Route: 042
     Dates: start: 20210309
  5. AZITHROMYCIN ANHYDROUS. [Concomitant]
     Active Substance: AZITHROMYCIN ANHYDROUS
     Indication: PNEUMONIA MYCOPLASMAL
     Dosage: AZITHROMYCIN (UNKNOWN)
     Route: 048
     Dates: start: 20210226, end: 20210301
  6. LISOCABTAGENE MARALEUCEL. [Suspect]
     Active Substance: LISOCABTAGENE MARALEUCEL
     Indication: CHRONIC LYMPHOCYTIC LEUKAEMIA
     Dosage: JCAR017(LISOCABTAGENE MARALEUCEL)?100 X 10^6 CAR+T CELLS, SINGLE
     Route: 042
     Dates: start: 20210309, end: 20210309
  7. ALLOPURINOL. [Concomitant]
     Active Substance: ALLOPURINOL
     Indication: TUMOUR LYSIS SYNDROME
     Dosage: ALLOPURINOL (300 MILLIGRAM, TABLETS)
     Route: 048
  8. ACICLOVIR [Concomitant]
     Active Substance: ACYCLOVIR
     Indication: PROPHYLAXIS
     Dosage: ACYCLOVIR (ACICLOVIR) (400 MILLIGRAM, TABLETS)
     Route: 048
     Dates: start: 202007
  9. PARACETAMOL [Concomitant]
     Active Substance: ACETAMINOPHEN
     Dosage: ACETAMINOPHEN (PARACETAMOL) (UNKNOWN)
     Route: 048
     Dates: start: 20210310, end: 20210310
  10. SODIUM CHLORIDE. [Concomitant]
     Active Substance: SODIUM CHLORIDE
     Dosage: NACL (SODIUM CHLORIDE)(0.9 PERCENT, UNKNOWN)
     Route: 065
     Dates: start: 20210327
  11. FUROSEMIDE. [Concomitant]
     Active Substance: FUROSEMIDE
     Indication: PERIPHERAL SWELLING
     Dosage: FUROSEMIDE (2 MILLIGRAM, TABLETS)?ONGOING
     Route: 048
     Dates: start: 20210219
  12. ONDANSETRON [Concomitant]
     Active Substance: ONDANSETRON
     Indication: NAUSEA
     Dosage: ONDANSETRON (INJECTION)
     Route: 042
     Dates: start: 20210303, end: 20210305
  13. REMDESIVIR. [Concomitant]
     Active Substance: REMDESIVIR
     Indication: COVID-19
     Dosage: REMDESIVIR (INJECTION)
     Route: 042
     Dates: start: 20210225, end: 20210301
  14. LISINOPRIL. [Concomitant]
     Active Substance: LISINOPRIL
     Indication: HYPERTENSION
     Dosage: LISINOPRIL (10 MILLIGRAM, TABLETS)?ONGOING
     Route: 048
     Dates: start: 201112
  15. LEVOFLOXACIN. [Concomitant]
     Active Substance: LEVOFLOXACIN
     Indication: PRODUCT USED FOR UNKNOWN INDICATION
     Dosage: LEVOFLOXACIN (500 MILLIGRAM, TABLETS)
     Route: 048
     Dates: start: 20210223
  16. DIPHENHYDRAMINE. [Concomitant]
     Active Substance: DIPHENHYDRAMINE
     Indication: PREMEDICATION
     Dosage: DIPHENHYDRAMINE (CAPSULES)
     Route: 048
     Dates: start: 20210302, end: 20210302
  17. ACICLOVIR [Concomitant]
     Active Substance: ACYCLOVIR
     Indication: ANTIBIOTIC THERAPY
  18. INSULIN DETEMIR [Concomitant]
     Active Substance: INSULIN DETEMIR
     Indication: BLOOD GLUCOSE FLUCTUATION
     Dosage: 100 UNIT/ML; 0.6ML?ONGOING
     Route: 058
     Dates: start: 201112
  19. DIPHENHYDRAMINE. [Concomitant]
     Active Substance: DIPHENHYDRAMINE
     Route: 042
     Dates: start: 20210309, end: 20210309
  20. GLUCOSE [Concomitant]
     Active Substance: DEXTROSE
     Indication: PRODUCT USED FOR UNKNOWN INDICATION
     Dosage: DEXTROSE (GLUCOSE) (50 PERCENT, INJECTION)
     Route: 042
     Dates: start: 20210226, end: 20210227
  21. SODIUM CHLORIDE. [Concomitant]
     Active Substance: SODIUM CHLORIDE
     Dosage: NACL (SODIUM CHLORIDE)(0.9 PERCENT, UNKNOWN)
     Route: 042
     Dates: start: 20210310
  22. FENTANYL. [Concomitant]
     Active Substance: FENTANYL
     Indication: SEDATION
     Dosage: FENTANYL (INJECTION)
     Route: 042
     Dates: start: 20210305, end: 20210305
  23. ALLOPURINOL. [Concomitant]
     Active Substance: ALLOPURINOL
     Dosage: ALLOPURINOL (300 MILLIGRAM, TABLETS)
     Route: 048
     Dates: start: 20210322, end: 20210330
  24. SALBUTAMOL [Concomitant]
     Active Substance: ALBUTEROL
     Dates: start: 20210225, end: 20210305
  25. ALLOPURINOL. [Concomitant]
     Active Substance: ALLOPURINOL
     Indication: PROPHYLAXIS
     Dosage: ALLOPURINOL (300 MILLIGRAM, TABLETS)
     Route: 048
     Dates: start: 20210311, end: 20210312
  26. CALCIUM ACETATE. [Concomitant]
     Active Substance: CALCIUM ACETATE
     Indication: TUMOUR LYSIS SYNDROME
     Route: 065
     Dates: start: 20210202
  27. SALBUTAMOL [Concomitant]
     Active Substance: ALBUTEROL
     Indication: BRONCHITIS
     Dosage: 2.5MG/3ML
     Dates: start: 20210215
  28. PARACETAMOL [Concomitant]
     Active Substance: ACETAMINOPHEN
     Indication: PREMEDICATION
     Dosage: ACETAMINOPHEN (PARACETAMOL) (UNKNOWN)
     Route: 048
     Dates: start: 20210309, end: 20210309
  29. DIPHENHYDRAMINE. [Concomitant]
     Active Substance: DIPHENHYDRAMINE
     Dosage: DIPHENHYDRAMINE (CAPSULES)
     Route: 048
     Dates: start: 20210309, end: 20210309
  30. SODIUM CHLORIDE. [Concomitant]
     Active Substance: SODIUM CHLORIDE
     Indication: TUMOUR LYSIS SYNDROME
     Dosage: NACL (SODIUM CHLORIDE)(0.9 PERCENT, UNKNOWN)
     Route: 042
     Dates: start: 20210303, end: 20210305
  31. FLUDARABINE [Suspect]
     Active Substance: FLUDARABINE PHOSPHATE
     Indication: CHRONIC LYMPHOCYTIC LEUKAEMIA
     Dosage: FLUDARABINE INJECTION FOR INFUSION
     Route: 042
     Dates: start: 20210303, end: 20210305
  32. TRIAMCINOLONE [Concomitant]
     Active Substance: TRIAMCINOLONE
     Indication: ARTHROPOD BITE
     Dosage: 1 APPLICATION?TRIAMCINOLONE (0.1 PERCENT, CREAM)?ONGOING
     Route: 061
     Dates: start: 201907
  33. FUROSEMIDE. [Concomitant]
     Active Substance: FUROSEMIDE
     Indication: OEDEMA PERIPHERAL
     Route: 042
     Dates: start: 20210301, end: 20210301
  34. PENTAMIDINE [Concomitant]
     Active Substance: PENTAMIDINE
     Indication: PNEUMOCYSTIS JIROVECII PNEUMONIA
     Dosage: PENTAMIDINE (SOLUTION)
     Dates: start: 20210302, end: 20210302
  35. POTASSIUM CHLORIDE. [Concomitant]
     Active Substance: POTASSIUM CHLORIDE
     Indication: PRODUCT USED FOR UNKNOWN INDICATION
     Dosage: POTASSIUM CHLORIDE (20 MILLIEQUIVALENTS, SUSTAINED?RELEASE TABLET)?ONGOING
     Route: 048
     Dates: start: 20210219
  36. CYCLOPHOSPHAMIDE. [Suspect]
     Active Substance: CYCLOPHOSPHAMIDE
     Indication: CHRONIC LYMPHOCYTIC LEUKAEMIA
     Dosage: CYCLOPHOSPHAMIDE INJECTION FOR INFUSION
     Route: 042
     Dates: start: 20210303, end: 20210305
  37. FENTANYL. [Concomitant]
     Active Substance: FENTANYL
     Indication: ANAESTHESIA

REACTIONS (3)
  - Cytokine release syndrome [Recovered/Resolved]
  - Tumour lysis syndrome [Recovered/Resolved]
  - Haemophagocytic lymphohistiocytosis [Recovered/Resolved]

NARRATIVE: CASE EVENT DATE: 20210310
